FAERS Safety Report 7528811-4 (Version None)
Quarter: 2011Q2

REPORT INFORMATION
  Report Type: 
  Country: None (occurrence: None)
  Receive Date: 20110607
  Receipt Date: 20110131
  Transmission Date: 20111010
  Serious: No
  Sender: FDA-Public Use
  Company Number: US-ASTRAZENECA-2011SE05403

PATIENT
  Sex: Female

DRUGS (5)
  1. VITAMINE B12 [Concomitant]
  2. PRILOSEC OTC [Suspect]
     Route: 048
  3. POTASSIUM CHLORIDE [Concomitant]
  4. VITAMINE C [Concomitant]
  5. CRESTOR [Suspect]
     Route: 048

REACTIONS (3)
  - ABDOMINAL PAIN UPPER [None]
  - INSOMNIA [None]
  - FATIGUE [None]
